FAERS Safety Report 18800480 (Version 6)
Quarter: 2021Q2

REPORT INFORMATION
  Report Type: Report from Study
  Country: US (occurrence: US)
  Receive Date: 20210128
  Receipt Date: 20210519
  Transmission Date: 20210717
  Serious: Yes (Other)
  Sender: FDA-Public Use
  Company Number: NVSC2021US010863

PATIENT
  Sex: Male

DRUGS (2)
  1. ENTRESTO [Suspect]
     Active Substance: SACUBITRIL\VALSARTAN
     Indication: PRODUCT USED FOR UNKNOWN INDICATION
     Dosage: 1 DF, BID (24/26MG)
     Route: 048
     Dates: start: 202012
  2. ENTRESTO [Suspect]
     Active Substance: SACUBITRIL\VALSARTAN
     Dosage: 1 DF, BID (97/103MG)
     Route: 048

REACTIONS (8)
  - Dyspnoea [Unknown]
  - Throat clearing [Unknown]
  - Ejection fraction decreased [Recovering/Resolving]
  - Memory impairment [Unknown]
  - Hypotension [Unknown]
  - Lung neoplasm [Unknown]
  - Intentional dose omission [Unknown]
  - Hypersensitivity [Unknown]
